FAERS Safety Report 7616751-1 (Version None)
Quarter: 2011Q3

REPORT INFORMATION
  Report Type: 
  Country: None (occurrence: None)
  Receive Date: 20110718
  Receipt Date: 20110707
  Transmission Date: 20111222
  Serious: Yes (Hospitalization)
  Sender: FDA-Public Use
  Company Number: 2008BI017692

PATIENT
  Age: 57 Year
  Sex: Female

DRUGS (3)
  1. AVONEX [Suspect]
     Indication: MULTIPLE SCLEROSIS
     Route: 030
     Dates: start: 20020605, end: 20030101
  2. AVONEX [Suspect]
     Route: 030
     Dates: start: 20071023
  3. AVONEX [Suspect]
     Route: 030
     Dates: start: 20030101, end: 20070926

REACTIONS (3)
  - HIP FRACTURE [None]
  - GASTROOESOPHAGEAL REFLUX DISEASE [None]
  - FALL [None]
